FAERS Safety Report 6155216-3 (Version None)
Quarter: 2009Q2

REPORT INFORMATION
  Report Type: 
  Country: None (occurrence: None)
  Receive Date: 20090415
  Receipt Date: 20070606
  Transmission Date: 20091009
  Serious: Yes (Hospitalization, Other)
  Sender: FDA-Public Use
  Company Number: US-ASTRAZENECA-2006UW07717

PATIENT
  Age: 50 Year
  Sex: Female
  Weight: 111.1 kg

DRUGS (36)
  1. SEROQUEL [Suspect]
     Indication: SCHIZOPHRENIA
     Dosage: 100 MG-300 MG
     Route: 048
     Dates: start: 20000101, end: 20070919
  2. SEROQUEL [Suspect]
     Indication: BIPOLAR DISORDER
     Dosage: 100 MG-300 MG
     Route: 048
     Dates: start: 20000101, end: 20070919
  3. SEROQUEL [Suspect]
     Indication: DEPRESSION
     Dosage: 100 MG-300 MG
     Route: 048
     Dates: start: 20000101, end: 20070919
  4. SEROQUEL [Suspect]
     Dosage: 100 MG - 1200 MG
     Route: 048
     Dates: start: 20000305, end: 20070919
  5. SEROQUEL [Suspect]
     Dosage: 100 MG - 1200 MG
     Route: 048
     Dates: start: 20000305, end: 20070919
  6. SEROQUEL [Suspect]
     Dosage: 100 MG - 1200 MG
     Route: 048
     Dates: start: 20000305, end: 20070919
  7. ABILIFY [Concomitant]
     Dosage: 10 MG - 30 MG
     Dates: start: 20030226, end: 20060318
  8. ABILIFY [Concomitant]
     Dates: start: 20040101
  9. STELAZINE [Concomitant]
     Dates: start: 19951228, end: 20010303
  10. ZYPREXA/SYMBYAX (OLANZAPINE) [Concomitant]
     Dates: start: 19970727, end: 19980206
  11. RISPERDAL [Concomitant]
     Dates: start: 20041018
  12. ZOLOFT [Concomitant]
     Dates: start: 19970301, end: 19970701
  13. CLONAZEPAM [Concomitant]
     Dates: start: 19970701, end: 20070601
  14. LORAZEPAM [Concomitant]
     Dates: start: 19970301, end: 19990901
  15. PAXIL [Concomitant]
     Dates: start: 19991001, end: 20010201
  16. TRAZODONE HCL [Concomitant]
     Dates: start: 19991001
  17. DEPAKOTE [Concomitant]
     Dates: start: 19991001
  18. CELEXA [Concomitant]
     Dates: start: 20020501, end: 20030701
  19. LITHIUM CARBONATE [Concomitant]
     Dates: start: 20040401
  20. WELLBUTRIN XL [Concomitant]
     Dates: start: 20040601
  21. TRICOR [Concomitant]
  22. KLONOPIN [Concomitant]
  23. PRINIVIL [Concomitant]
  24. SYNTHROID [Concomitant]
  25. ZANTAC [Concomitant]
  26. COMBIVENT [Concomitant]
  27. VISTARIL [Concomitant]
  28. ZOCOR [Concomitant]
  29. HYDROCHLOROTHIAZIDE [Concomitant]
  30. ADVIL [Concomitant]
  31. ULTRAM [Concomitant]
  32. TYLENOL [Concomitant]
  33. LOTENSIN [Concomitant]
  34. ATIVAN [Concomitant]
  35. UNIVASC [Concomitant]
  36. FAMOTIDINE [Concomitant]

REACTIONS (15)
  - AFFECTIVE DISORDER [None]
  - CHEST PAIN [None]
  - CHOLECYSTITIS [None]
  - CHOLELITHIASIS [None]
  - DYSPNOEA [None]
  - GALLBLADDER DISORDER [None]
  - HYPERGLYCAEMIA [None]
  - HYPERTENSION [None]
  - INTERVERTEBRAL DISC DISORDER [None]
  - IRRITABLE BOWEL SYNDROME [None]
  - LYMPHADENOPATHY [None]
  - MANIA [None]
  - MUSCULOSKELETAL CHEST PAIN [None]
  - SLEEP APNOEA SYNDROME [None]
  - SUICIDAL BEHAVIOUR [None]
